FAERS Safety Report 12426720 (Version 1)
Quarter: 2016Q2

REPORT INFORMATION
  Report Type: Report from Study
  Country: US (occurrence: US)
  Receive Date: 20160601
  Receipt Date: 20160601
  Transmission Date: 20160815
  Serious: Yes (Other)
  Sender: FDA-Public Use
  Company Number: GXBR2014US001561

PATIENT
  Sex: Female
  Weight: 55.33 kg

DRUGS (2)
  1. OMNITROPE [Suspect]
     Active Substance: SOMATROPIN
     Indication: GROWTH HORMONE DEFICIENCY
     Dosage: 0.6 MG, SIX DAYS A WEEK
     Route: 065
     Dates: start: 20140520, end: 20140623
  2. OMNITROPE [Suspect]
     Active Substance: SOMATROPIN
     Dosage: 0.3 MG, SIX DAYS A WEEK
     Route: 065
     Dates: start: 20140626, end: 201408

REACTIONS (3)
  - Headache [Not Recovered/Not Resolved]
  - Craniopharyngioma [Unknown]
  - Insulin-like growth factor increased [Unknown]
